FAERS Safety Report 6039666-1 (Version None)
Quarter: 2009Q1

REPORT INFORMATION
  Report Type: 
  Country: None (occurrence: None)
  Receive Date: 20090116
  Receipt Date: 20090113
  Transmission Date: 20090719
  Serious: Yes (Other)
  Sender: FDA-Public Use
  Company Number: AU-ASTRAZENECA-2009AP00504

PATIENT
  Sex: Male

DRUGS (7)
  1. NEXIUM [Suspect]
     Route: 048
     Dates: start: 20050101
  2. NEXIUM [Suspect]
     Route: 048
     Dates: start: 20060101
  3. VENTOLIN [Concomitant]
  4. PULMICORT-100 [Concomitant]
  5. MICARDIS [Concomitant]
  6. DIGOXIN [Concomitant]
  7. ASPIRIN [Concomitant]

REACTIONS (3)
  - HYPERPARATHYROIDISM [None]
  - OEDEMA PERIPHERAL [None]
  - URINE CALCIUM INCREASED [None]
